FAERS Safety Report 23097964 (Version 1)
Quarter: 2023Q4

REPORT INFORMATION
  Report Type: Spontaneous
  Country: US (occurrence: None)
  Receive Date: 20231020
  Receipt Date: 20231020
  Transmission Date: 20240110
  Serious: Yes (Hospitalization)
  Sender: FDA-Public Use
  Company Number: None

PATIENT
  Age: 89 Year
  Sex: Male

DRUGS (1)
  1. APIXABAN [Suspect]
     Active Substance: APIXABAN
     Dosage: FREQUENCY : TWICE A DAY;?
     Route: 048
     Dates: start: 20190101, end: 20230310

REACTIONS (7)
  - Anaemia [None]
  - Therapy cessation [None]
  - Haematuria [None]
  - Chronic kidney disease [None]
  - Inflammation [None]
  - Anaemia of chronic disease [None]
  - Iron deficiency anaemia [None]

NARRATIVE: CASE EVENT DATE: 20230310
